FAERS Safety Report 18843425 (Version 1)
Quarter: 2021Q1

REPORT INFORMATION
  Report Type: Spontaneous
  Country: PL (occurrence: PL)
  Receive Date: 20210203
  Receipt Date: 20210203
  Transmission Date: 20210419
  Serious: No
  Sender: FDA-Public Use
  Company Number: PL-EXELIXIS-CABO-18029408

PATIENT
  Age: 71 Year
  Sex: Male
  Weight: 68 kg

DRUGS (1)
  1. CABOMETYX [Suspect]
     Active Substance: CABOZANTINIB S-MALATE
     Indication: RENAL CELL CARCINOMA
     Dosage: 20 MG, QD
     Route: 048

REACTIONS (4)
  - Diarrhoea [Unknown]
  - Hypothyroidism [Unknown]
  - Aspartate aminotransferase increased [Unknown]
  - Urinary incontinence [Unknown]
